FAERS Safety Report 23088523 (Version 1)
Quarter: 2023Q4

REPORT INFORMATION
  Report Type: Spontaneous
  Country: KR (occurrence: KR)
  Receive Date: 20231020
  Receipt Date: 20231020
  Transmission Date: 20240110
  Serious: Yes (Other)
  Sender: FDA-Public Use
  Company Number: KR-AMNEAL PHARMACEUTICALS-2023-AMRX-03626

PATIENT
  Age: 26 Year
  Sex: Male

DRUGS (5)
  1. ADRENACLICK [Suspect]
     Active Substance: EPINEPHRINE
     Indication: Product used for unknown indication
     Dosage: 2 MILLILITER (1:10,000)
     Route: 050
  2. ADRENACLICK [Suspect]
     Active Substance: EPINEPHRINE
     Dosage: 7.2 MILLILITER (1:100,000)
     Route: 030
  3. ADRENACLICK [Suspect]
     Active Substance: EPINEPHRINE
     Dosage: 5 MICROGRAM
     Route: 042
  4. ESMOLOL [Suspect]
     Active Substance: ESMOLOL HYDROCHLORIDE
     Indication: Tachycardia
     Dosage: 10 MILLIGRAM
     Route: 042
  5. ESMOLOL [Suspect]
     Active Substance: ESMOLOL HYDROCHLORIDE
     Indication: Hypertension

REACTIONS (3)
  - Cardiac failure acute [Recovered/Resolved]
  - Tachycardia [Recovered/Resolved]
  - Hypertension [Recovered/Resolved]
